FAERS Safety Report 24797453 (Version 4)
Quarter: 2025Q2

REPORT INFORMATION
  Report Type: Report from Study
  Country: US (occurrence: US)
  Receive Date: 20250102
  Receipt Date: 20250520
  Transmission Date: 20250717
  Serious: Yes (Hospitalization, Other)
  Sender: INSMED
  Company Number: US-INSMED-2024-04576-USAA

PATIENT
  Sex: Male

DRUGS (1)
  1. ARIKAYCE [Suspect]
     Active Substance: AMIKACIN
     Indication: Mycobacterium avium complex infection
     Dosage: 590 MILLIGRAM, QD
     Route: 055
     Dates: start: 2024, end: 202412

REACTIONS (4)
  - Alveolitis [Unknown]
  - Inflammation [Unknown]
  - Infection [Unknown]
  - Pulmonary resection [Unknown]

NARRATIVE: CASE EVENT DATE: 20240101
